FAERS Safety Report 18793466 (Version 2)
Quarter: 2021Q3

REPORT INFORMATION
  Report Type: Spontaneous
  Country: AR (occurrence: AR)
  Receive Date: 20210127
  Receipt Date: 20210806
  Transmission Date: 20211014
  Serious: Yes (Other)
  Sender: FDA-Public Use
  Company Number: AR-PFIZER INC-2021057746

PATIENT
  Age: 78 Year
  Sex: Female

DRUGS (2)
  1. IBRANCE [Suspect]
     Active Substance: PALBOCICLIB
     Indication: BREAST CANCER METASTATIC
     Dosage: 125 MG, CYCLIC (DAILY, SCHEME 3X1)
     Dates: start: 20201113
  2. IBRANCE [Suspect]
     Active Substance: PALBOCICLIB
     Dosage: 100 MG

REACTIONS (5)
  - Limb discomfort [Unknown]
  - Decreased immune responsiveness [Unknown]
  - Necrotic lymphadenopathy [Unknown]
  - Depressed level of consciousness [Unknown]
  - Lymphoedema [Unknown]
